FAERS Safety Report 17099824 (Version 1)
Quarter: 2019Q4

REPORT INFORMATION
  Report Type: Report from Study
  Country: US (occurrence: US)
  Receive Date: 20191202
  Receipt Date: 20191202
  Transmission Date: 20200122
  Serious: No
  Sender: FDA-Public Use
  Company Number: US-DOVA PHARMACEUTICALS INC.-DOV-000369

PATIENT

DRUGS (1)
  1. DOPTELET [Suspect]
     Active Substance: AVATROMBOPAG MALEATE
     Indication: LIVER DISORDER
     Dosage: 40 MG, QD
     Route: 048

REACTIONS (3)
  - No adverse event [Unknown]
  - Off label use [Unknown]
  - Inappropriate schedule of product administration [Unknown]
